FAERS Safety Report 6715819-1 (Version None)
Quarter: 2010Q2

REPORT INFORMATION
  Report Type: 
  Country: None (occurrence: None)
  Receive Date: 20100506
  Receipt Date: 20100506
  Transmission Date: 20101027
  Serious: Yes (Hospitalization)
  Sender: FDA-Public Use
  Company Number: None

PATIENT
  Sex: Female
  Weight: 117 kg

DRUGS (1)
  1. TEMOZOLOMIDE [Suspect]
     Dosage: 1775 MG
     Dates: end: 20100313

REACTIONS (6)
  - ASPARTATE AMINOTRANSFERASE INCREASED [None]
  - FATIGUE [None]
  - GENERAL PHYSICAL HEALTH DETERIORATION [None]
  - LYMPHOCYTE COUNT ABNORMAL [None]
  - MENTAL IMPAIRMENT [None]
  - PNEUMONIA [None]
